FAERS Safety Report 9465326 (Version 4)
Quarter: 2013Q3

REPORT INFORMATION
  Report Type: Spontaneous
  Country: US (occurrence: US)
  Receive Date: 20130820
  Receipt Date: 20130910
  Transmission Date: 20140515
  Serious: Yes (Other)
  Sender: FDA-Public Use
  Company Number: US-MERCK-1308USA007108

PATIENT
  Sex: 0

DRUGS (2)
  1. MK-0000 [Suspect]
  2. INSULIN [Suspect]
     Dosage: UNK

REACTIONS (1)
  - Pancreatic carcinoma [Unknown]
